FAERS Safety Report 23808806 (Version 2)
Quarter: 2024Q2

REPORT INFORMATION
  Report Type: Spontaneous
  Country: US (occurrence: US)
  Receive Date: 20240502
  Receipt Date: 20240513
  Transmission Date: 20240716
  Serious: No
  Sender: FDA-Public Use
  Company Number: US-BRISTOL-MYERS SQUIBB COMPANY-2024-059314

PATIENT
  Age: 67 Year
  Sex: Female

DRUGS (7)
  1. ELIQUIS [Suspect]
     Active Substance: APIXABAN
     Dosage: UNK
  2. GABAPENTIN [Suspect]
     Active Substance: GABAPENTIN
     Dosage: 800 MG
  3. QUETIAPINE FUMARATE [Suspect]
     Active Substance: QUETIAPINE FUMARATE
     Dosage: 25 MG
     Route: 048
  4. VYNDAQEL [Concomitant]
     Active Substance: TAFAMIDIS MEGLUMINE
     Indication: Deep vein thrombosis
     Dosage: 2 DOSAGE FORM 2 EVERY 1 DAY)
     Route: 048
  5. AMVUTTRA [Concomitant]
     Active Substance: VUTRISIRAN
     Dosage: 25 MG
  6. IBUPROFEN [Concomitant]
     Active Substance: IBUPROFEN
     Dosage: 200 MG
     Route: 048
  7. ONDANSETRON HYDROCHLORIDE [Concomitant]
     Active Substance: ONDANSETRON HYDROCHLORIDE

REACTIONS (8)
  - Rash macular [Unknown]
  - Cystitis [Unknown]
  - Dehydration [Unknown]
  - Hyperhidrosis [Unknown]
  - Insomnia [Unknown]
  - Dizziness [Unknown]
  - Lethargy [Unknown]
  - Pain [Unknown]
